FAERS Safety Report 7417144-2 (Version None)
Quarter: 2011Q2

REPORT INFORMATION
  Report Type: 
  Country: None (occurrence: None)
  Receive Date: 20110415
  Receipt Date: 20110318
  Transmission Date: 20111010
  Serious: Yes (Other)
  Sender: FDA-Public Use
  Company Number: US-BAYER-201022323NA

PATIENT
  Sex: Female

DRUGS (5)
  1. METFORMIN [Concomitant]
  2. GLYBURIDE [Concomitant]
  3. ASPIRIN [Concomitant]
  4. YASMIN [Suspect]
     Indication: PRODUCT USED FOR UNKNOWN INDICATION
     Route: 048
     Dates: start: 20070801, end: 20071001
  5. BLACK COHOSH [Concomitant]

REACTIONS (3)
  - RENAL INFARCT [None]
  - DEEP VEIN THROMBOSIS [None]
  - SPLENIC EMBOLISM [None]
